FAERS Safety Report 13002978 (Version 1)
Quarter: 2016Q4

REPORT INFORMATION
  Report Type: Spontaneous
  Country: US (occurrence: US)
  Receive Date: 20161205
  Receipt Date: 20161205
  Transmission Date: 20170207
  Serious: Yes (Other)
  Sender: FDA-Public Use
  Company Number: None

PATIENT
  Age: 54 Year
  Sex: Female
  Weight: 60 kg

DRUGS (2)
  1. ANALGESIC/CALMATIVE [Concomitant]
  2. LORATADINE 10MG [Suspect]
     Active Substance: LORATADINE
     Indication: PRURITUS
     Dosage: ?          QUANTITY:1 TABLET(S);?
     Route: 048
     Dates: start: 20161205, end: 20161205

REACTIONS (4)
  - Dizziness [None]
  - Nausea [None]
  - Nightmare [None]
  - Hyperhidrosis [None]

NARRATIVE: CASE EVENT DATE: 20161205
